FAERS Safety Report 20326655 (Version 2)
Quarter: 2022Q1

REPORT INFORMATION
  Report Type: Spontaneous
  Country: US (occurrence: US)
  Receive Date: 20220112
  Receipt Date: 20220117
  Transmission Date: 20220423
  Serious: Yes (Hospitalization)
  Sender: FDA-Public Use
  Company Number: US-SUNOVION-2021SUN004843

PATIENT
  Age: 40 Year
  Sex: Female

DRUGS (2)
  1. LATUDA [Suspect]
     Active Substance: LURASIDONE HYDROCHLORIDE
     Dosage: 20 MG, QD
     Route: 048
  2. ESCITALOPRAM [Concomitant]
     Active Substance: ESCITALOPRAM OXALATE
     Dosage: UNK

REACTIONS (7)
  - Electric shock sensation [Unknown]
  - Staring [Unknown]
  - Decreased gait velocity [Unknown]
  - Mutism [Unknown]
  - Bradykinesia [Unknown]
  - Somnolence [Unknown]
  - Product dose omission issue [Unknown]
